FAERS Safety Report 10593092 (Version 1)
Quarter: 2014Q4

REPORT INFORMATION
  Report Type: Spontaneous
  Country: US (occurrence: None)
  Receive Date: 20141118
  Receipt Date: 20141118
  Transmission Date: 20150529
  Serious: Yes (Other)
  Sender: FDA-Public Use
  Company Number: None

PATIENT
  Age: 22 Year
  Sex: Female
  Weight: 86.18 kg

DRUGS (1)
  1. NEXPLANON [Suspect]
     Active Substance: ETONOGESTREL

REACTIONS (15)
  - Dizziness [None]
  - Emotional disorder [None]
  - Dyspnoea [None]
  - Syncope [None]
  - Premenstrual dysphoric disorder [None]
  - Haemorrhage [None]
  - Weight increased [None]
  - Orthostatic hypotension [None]
  - Back pain [None]
  - Condition aggravated [None]
  - Headache [None]
  - Breast disorder [None]
  - Loss of libido [None]
  - No therapeutic response [None]
  - Activities of daily living impaired [None]

NARRATIVE: CASE EVENT DATE: 20141003
